FAERS Safety Report 6110312 (Version 18)
Quarter: 2021Q1

REPORT INFORMATION
  Report Type: Spontaneous
  Country: US (occurrence: US)
  Receive Date: 20060818
  Receipt Date: 20210209
  Transmission Date: 20210420
  Serious: Yes (Disabling, Other)
  Sender: FDA-Public Use
  Company Number: US-ALLERGAN-0603106US

PATIENT
  Sex: Female
  Weight: 63.49 kg

DRUGS (8)
  1. BOTOX COSMETIC [Suspect]
     Active Substance: ONABOTULINUMTOXINA
     Indication: SKIN WRINKLING
     Dosage: 20 UNITS, SINGLE
     Route: 030
     Dates: start: 20060714, end: 20060714
  2. BOTOX COSMETIC [Suspect]
     Active Substance: ONABOTULINUMTOXINA
     Dosage: 56 UNITS, SINGLE
     Route: 030
     Dates: start: 20060427, end: 20060427
  3. ATENOLOL. [Concomitant]
     Active Substance: ATENOLOL
     Indication: CARDIOMYOPATHY
     Dosage: 50 MG, QD
     Route: 048
     Dates: end: 20070223
  4. BOTOX COSMETIC [Suspect]
     Active Substance: ONABOTULINUMTOXINA
     Indication: SKIN WRINKLING
     Dosage: 14 UNITS, SINGLE
     Route: 030
     Dates: start: 20060714, end: 20060714
  5. BOTOX COSMETIC [Suspect]
     Active Substance: ONABOTULINUMTOXINA
     Indication: SKIN WRINKLING
     Dosage: 10 UNITS, SINGLE
     Route: 030
     Dates: start: 20060714, end: 20060714
  6. RESTYLANE [Suspect]
     Active Substance: HYALURONIC ACID
     Indication: SKIN WRINKLING
     Dosage: 1 ML, SINGLE
     Route: 065
     Dates: start: 20060714, end: 20060714
  7. BOTOX COSMETIC [Suspect]
     Active Substance: ONABOTULINUMTOXINA
     Dosage: 6 UNITS, SINGLE
     Route: 030
     Dates: start: 20060714, end: 20060714
  8. XYLOCAINE WITH EPINEPHRINE [Suspect]
     Active Substance: EPINEPHRINE BITARTRATE\LIDOCAINE HYDROCHLORIDE
     Indication: ANAESTHESIA
     Dosage: 2 ML, SINGLE
     Route: 065
     Dates: start: 20060714, end: 20060714

REACTIONS (32)
  - Asthenia [Not Recovered/Not Resolved]
  - Pain [Not Recovered/Not Resolved]
  - Accommodation disorder [Unknown]
  - Visual acuity reduced [Not Recovered/Not Resolved]
  - Paraesthesia [Unknown]
  - Polyneuropathy [Recovering/Resolving]
  - Myositis [Not Recovered/Not Resolved]
  - Muscular weakness [Unknown]
  - Blood creatine phosphokinase increased [Recovered/Resolved]
  - Diplopia [Recovered/Resolved]
  - Botulism [Unknown]
  - Myasthenia gravis [Recovering/Resolving]
  - Palpitations [Unknown]
  - Depression [Not Recovered/Not Resolved]
  - Anger [Unknown]
  - Sleep disorder [Unknown]
  - Extraocular muscle disorder [Unknown]
  - Dyspnoea [Recovered/Resolved]
  - Dysarthria [Unknown]
  - Bedridden [Unknown]
  - Pain in extremity [Not Recovered/Not Resolved]
  - Gait disturbance [Recovered/Resolved]
  - Arthralgia [Recovering/Resolving]
  - Fatigue [Not Recovered/Not Resolved]
  - Neuritis [Unknown]
  - Pain [Recovering/Resolving]
  - Vision blurred [Recovered/Resolved]
  - Hypoaesthesia [Not Recovered/Not Resolved]
  - Dysphagia [Recovered/Resolved]
  - Hypoaesthesia [Not Recovered/Not Resolved]
  - Product preparation error [Unknown]
  - Myalgia [Recovered/Resolved]

NARRATIVE: CASE EVENT DATE: 20060714
